FAERS Safety Report 7635498 (Version 6)
Quarter: 2012Q4

REPORT INFORMATION
  Report Type: 
  Country: JP (occurrence: JP)
  Receive Date: 20101020
  Receipt Date: 20121211
  Transmission Date: 20130627
  Serious: Yes (Hospitalization)
  Sender: FDA-Public Use
  Company Number: JP-PFIZER INC-2010098000

PATIENT
  Age: 11 Year
  Sex: Male

DRUGS (45)
  1. ATARAX-P [Suspect]
     Indication: DIURETIC THERAPY
     Dosage: 25 mg, 1x/day
     Route: 041
     Dates: start: 20100709, end: 20100709
  2. TAKEPRON [Suspect]
     Dosage: 7.5 mg, 2x/day
     Route: 048
     Dates: start: 20100628, end: 20100728
  3. ALDACTONE A [Suspect]
     Indication: DIURETIC THERAPY
     Dosage: 40 mg/day (min) - 100 mg/day (max)
     Route: 048
     Dates: start: 20100626, end: 20100706
  4. CEFAZOLIN SODIUM [Suspect]
     Dosage: 500 mg, 2x/day
     Route: 041
     Dates: start: 20100622, end: 20100624
  5. GASTER [Suspect]
     Dosage: 8 mg, 2x/day
     Route: 041
     Dates: start: 20100617, end: 20100626
  6. GASTER [Suspect]
     Dosage: 15 mg, daily
     Route: 048
     Dates: start: 20100626, end: 20100715
  7. DORMICUM [Suspect]
     Dosage: 10 mg UID/QD
     Route: 041
     Dates: start: 20100621, end: 20100621
  8. DORMICUM [Suspect]
     Dosage: 10 mg, 1x/day
     Route: 041
     Dates: start: 20100617, end: 20100709
  9. PHENOBAL [Suspect]
     Dosage: 50 mg, 2x/day
     Route: 048
     Dates: start: 20100622, end: 20100709
  10. CERCINE [Suspect]
     Dosage: 5 mg, UNK
     Route: 048
     Dates: start: 20100622, end: 20100701
  11. CERCINE [Suspect]
     Dosage: 4 ml
     Route: 048
     Dates: start: 20100702, end: 20100722
  12. VICCILLIN [Suspect]
     Dosage: 375 mg, 1x/day
     Dates: start: 20100715, end: 20100716
  13. ROCEPHIN [Suspect]
     Indication: INFECTION
     Dosage: 2000 mg, 1x/day
     Route: 041
     Dates: start: 20100630, end: 20100707
  14. BIOFERMIN R [Suspect]
     Dosage: 1g, UNK
     Route: 048
     Dates: start: 20100711, end: 20100718
  15. RISPERDAL [Suspect]
     Dosage: 0.3 ml, 1x/day
     Route: 048
     Dates: start: 20100702, end: 20100714
  16. CALONAL [Suspect]
     Indication: PYREXIA
     Dosage: 300 mg, 1x/day
     Route: 048
     Dates: start: 20100627, end: 20100716
  17. CLINDAMYCIN PHOSPHATE [Suspect]
     Dosage: 100 mg, 3x/day
     Route: 041
     Dates: start: 20100608, end: 20100710
  18. PIPERACILLIN [Suspect]
     Dosage: 375 mg, QID
     Route: 041
     Dates: start: 20100715, end: 20100716
  19. BIOFERMIN [Suspect]
     Dosage: 1 g, UNK
     Route: 048
     Dates: start: 20100711, end: 20100718
  20. MORPHINE HYDROCHLORIDE [Suspect]
     Dosage: 2 mg/kg, 1x/day
     Route: 041
     Dates: start: 20100621, end: 20100709
  21. LASIX [Suspect]
     Dosage: 2.5 mg QID
     Route: 048
     Dates: start: 20100626, end: 20100706
  22. LACTOBACILLUS CASEI [Suspect]
     Dosage: 500 mg
     Route: 048
     Dates: start: 20100702, end: 20100709
  23. DEPAS [Suspect]
     Dosage: 1 DF, UID/QD
     Route: 048
     Dates: start: 20100701, end: 20100701
  24. TRICLOFOS [Suspect]
     Dosage: 20 ml, UID/QD
     Route: 048
     Dates: start: 20100628, end: 20100705
  25. LAXOBERON [Suspect]
     Dosage: 10 ml, UID/QD
     Route: 048
     Dates: start: 20100620, end: 20100620
  26. OMEPRAL [Suspect]
     Dosage: 7.5 mg, 2x/day
     Route: 041
     Dates: start: 20100716, end: 20100721
  27. HEPARIN [Suspect]
     Dosage: 5 IU/KG, UID/QD
     Route: 041
     Dates: start: 20100808, end: 20100812
  28. HEPARIN SODIUM [Suspect]
     Dosage: 2 DF, UID/QD
     Route: 041
     Dates: start: 20100617
  29. GLYCEOL [Suspect]
     Dosage: 200 ml
     Route: 041
     Dates: start: 20100617, end: 20100618
  30. DECADRON [Suspect]
     Dosage: 2 mg
     Route: 041
     Dates: start: 20100617, end: 20100622
  31. ATROPINE SULFATE [Suspect]
     Dosage: 0.5 mg, UID/QD
     Route: 041
     Dates: start: 20100617, end: 20100622
  32. EPINEPHRINE [Suspect]
     Dosage: 10 mg, UID/QD
     Route: 041
     Dates: start: 20100621, end: 20100621
  33. CALCICOL [Suspect]
     Dosage: 10 ml, UID/QD
     Route: 041
     Dates: start: 20100621, end: 20100621
  34. FENTANYL [Suspect]
     Dosage: UNK
     Route: 041
     Dates: start: 20100621, end: 20100708
  35. ULTIVA [Suspect]
     Dosage: UNK
     Route: 041
     Dates: start: 20100621, end: 20100708
  36. NICARPINE [Suspect]
     Dosage: UNK
     Route: 041
  37. DEXMEDETOMIDINE HYDROCHLORIDE [Suspect]
     Dosage: UNK
     Route: 041
     Dates: start: 20100704, end: 20100705
  38. ROCURONIUM BROMIDE [Suspect]
     Dosage: 50 mg, 1x/day
     Route: 041
     Dates: start: 20100617, end: 20100706
  39. XYLOCAINE [Suspect]
     Dosage: 10 ml, 1x/day
     Route: 041
     Dates: start: 20100621, end: 20100709
  40. PANTHENOL [Suspect]
     Dosage: 25 mg, 2x/day
     Route: 041
     Dates: start: 20100604, end: 20100705
  41. ANHIBA [Suspect]
     Dosage: UNK
     Route: 054
     Dates: start: 20100630, end: 20100716
  42. ROPION [Suspect]
     Dosage: 3.5 ml, 1x/day
     Route: 041
     Dates: start: 20100709, end: 20100709
  43. TARIVID /SCH/ [Suspect]
     Dosage: UNK
     Route: 047
     Dates: start: 20100728, end: 20100729
  44. HYALEIN [Suspect]
     Dosage: UNK
     Route: 047
     Dates: start: 20100723, end: 20100821
  45. GLYCERIN [Suspect]
     Indication: CONSTIPATION
     Dosage: UNK
     Route: 054
     Dates: start: 20100627

REACTIONS (1)
  - Drug reaction with eosinophilia and systemic symptoms [Recovering/Resolving]
